FAERS Safety Report 8760228 (Version 1)
Quarter: 2012Q4

REPORT INFORMATION
  Report Type: Spontaneous
  Country: US (occurrence: None)
  Receive Date: 20120828
  Receipt Date: 20120828
  Transmission Date: 20130627
  Serious: Yes (Other)
  Sender: FDA-Public Use
  Company Number: None

PATIENT
  Age: 74 Year
  Sex: Female
  Weight: 77.11 kg

DRUGS (5)
  1. GASTROGRAFFIN [Suspect]
     Dosage: one gallon
     Route: 048
     Dates: start: 20100808
  2. INDERAL [Concomitant]
  3. HYDROCHLOROTHIAZIDE [Concomitant]
  4. GLYBURIDE [Concomitant]
  5. PARACETAMOL [Concomitant]

REACTIONS (6)
  - Fall [None]
  - Pathological fracture [None]
  - Humerus fracture [None]
  - Chondroma [None]
  - Dyspepsia [None]
  - Pancreatitis acute [None]
